FAERS Safety Report 18243122 (Version 2)
Quarter: 2020Q3

REPORT INFORMATION
  Report Type: Report from Study
  Country: US (occurrence: US)
  Receive Date: 20200908
  Receipt Date: 20200925
  Transmission Date: 20201103
  Serious: Yes (Other)
  Sender: FDA-Public Use
  Company Number: US-JNJFOC-A-NJ2020-207432

PATIENT
  Age: 39 Year
  Sex: Female
  Weight: 88.53 kg

DRUGS (11)
  1. UPTRAVI [Suspect]
     Active Substance: SELEXIPAG
     Dosage: UNK
     Route: 048
  2. UPTRAVI [Suspect]
     Active Substance: SELEXIPAG
     Dosage: 1000 MCG, BID
     Route: 048
  3. OPSUMIT [Suspect]
     Active Substance: MACITENTAN
     Indication: PULMONARY ARTERIAL HYPERTENSION
     Dosage: 10 MG, QD
     Route: 048
     Dates: start: 20190607
  4. DILTIAZEM. [Concomitant]
     Active Substance: DILTIAZEM
  5. UPTRAVI [Suspect]
     Active Substance: SELEXIPAG
     Indication: PULMONARY ARTERIAL HYPERTENSION
     Dosage: 200 MCG, BID
     Route: 048
  6. VELETRI [Suspect]
     Active Substance: EPOPROSTENOL
     Dosage: 25 NG/KG, PER MIN
     Route: 042
     Dates: end: 202009
  7. VELETRI [Suspect]
     Active Substance: EPOPROSTENOL
     Dosage: 5 NG/KG, PER MIN
     Route: 042
  8. TADALAFIL. [Concomitant]
     Active Substance: TADALAFIL
  9. UPTRAVI [Suspect]
     Active Substance: SELEXIPAG
     Dosage: 1000 MCG, BID
     Route: 065
  10. UPTRAVI [Suspect]
     Active Substance: SELEXIPAG
     Dosage: 800 MCG, BID
     Route: 048
  11. VELETRI [Suspect]
     Active Substance: EPOPROSTENOL
     Indication: PULMONARY ARTERIAL HYPERTENSION
     Dosage: 30 NG/KG, PER MIN
     Route: 042

REACTIONS (17)
  - Hyperglycaemia [Unknown]
  - Nausea [Unknown]
  - Facial pain [Recovering/Resolving]
  - Venous thrombosis limb [Unknown]
  - Arthralgia [Unknown]
  - Pain in jaw [Recovering/Resolving]
  - Diabetes mellitus [Unknown]
  - Blood glucose increased [Unknown]
  - Headache [Recovering/Resolving]
  - Catheter site haemorrhage [Unknown]
  - Fatigue [Unknown]
  - Vision blurred [Unknown]
  - Flushing [Unknown]
  - Confusional state [Unknown]
  - Constipation [Not Recovered/Not Resolved]
  - Catheter site discharge [Unknown]
  - Catheter site pain [Unknown]

NARRATIVE: CASE EVENT DATE: 20200729
